FAERS Safety Report 4590699-1 (Version None)
Quarter: 2005Q1

REPORT INFORMATION
  Report Type: 
  Country: None (occurrence: None)
  Receive Date: 20050224
  Receipt Date: 20050215
  Transmission Date: 20050727
  Serious: Yes (Life-Threatening, Disabling)
  Sender: FDA-Public Use
  Company Number: US-MERCK-0502USA02012

PATIENT
  Age: 42 Year
  Sex: Male

DRUGS (1)
  1. ZETIA [Suspect]
     Indication: BLOOD CHOLESTEROL INCREASED
     Route: 048
     Dates: start: 20040101, end: 20050101

REACTIONS (4)
  - CHEST PAIN [None]
  - DYSPNOEA [None]
  - EXTRASYSTOLES [None]
  - PAIN IN EXTREMITY [None]
